FAERS Safety Report 7488211-2 (Version None)
Quarter: 2011Q2

REPORT INFORMATION
  Report Type: 
  Country: None (occurrence: None)
  Receive Date: 20110518
  Receipt Date: 20110505
  Transmission Date: 20111010
  Serious: Yes (Other)
  Sender: FDA-Public Use
  Company Number: GR-ROCHE-776742

PATIENT

DRUGS (3)
  1. DOCETAXEL [Suspect]
     Indication: GASTRIC CANCER
     Route: 065
  2. CAPECITABINE [Suspect]
     Indication: GASTRIC CANCER
     Route: 065
  3. OXALIPLATIN [Suspect]
     Indication: GASTRIC CANCER
     Route: 065

REACTIONS (2)
  - NEUROTOXICITY [None]
  - NEUTROPENIA [None]
